FAERS Safety Report 16478878 (Version 1)
Quarter: 2019Q2

REPORT INFORMATION
  Report Type: Other
  Country: GB (occurrence: GB)
  Receive Date: 20190626
  Receipt Date: 20190626
  Transmission Date: 20190711
  Serious: Yes (Other)
  Sender: FDA-Public Use
  Company Number: GB-APOTEX-2019AP017038

PATIENT

DRUGS (1)
  1. MONTELUKAST [Suspect]
     Active Substance: MONTELUKAST SODIUM
     Indication: ASTHMA
     Dosage: 5 MG, UNK
     Route: 048
     Dates: start: 20190405, end: 20190505

REACTIONS (9)
  - Irritability [Unknown]
  - Insomnia [Unknown]
  - Sleep terror [Unknown]
  - Pruritus [Unknown]
  - Depression [Unknown]
  - Productive cough [Unknown]
  - Anxiety [Unknown]
  - Aggression [Unknown]
  - Agitation [Unknown]
